FAERS Safety Report 8395974-0 (Version None)
Quarter: 2012Q2

REPORT INFORMATION
  Report Type: 
  Country: None (occurrence: None)
  Receive Date: 20120530
  Receipt Date: 20120524
  Transmission Date: 20120825
  Serious: Yes (Hospitalization, Other)
  Sender: FDA-Public Use
  Company Number: US-PFIZER INC-2012070070

PATIENT
  Sex: Male
  Weight: 89.796 kg

DRUGS (19)
  1. CHANTIX [Suspect]
     Dosage: 1 MG, 2X/DAY
     Route: 048
     Dates: end: 20120114
  2. PLAVIX [Concomitant]
     Dosage: 75 MG, DAILY
     Route: 048
     Dates: start: 20120114
  3. ZOFRAN [Concomitant]
     Indication: NAUSEA
     Dosage: 4 MG, Q6H PRN
     Route: 048
     Dates: start: 20120114
  4. TYLENOL [Concomitant]
     Indication: PAIN
     Dosage: 650 MG, Q4H PRN
     Route: 048
     Dates: start: 20120114
  5. COLACE [Concomitant]
     Dosage: 100 MG, 2X/DAY
     Route: 048
     Dates: start: 20120114
  6. CELEBREX [Concomitant]
     Dosage: UNK
  7. LIPITOR [Concomitant]
     Dosage: 40 MG, BEDTIME
     Route: 048
     Dates: start: 20120114
  8. VASOTEC [Concomitant]
     Indication: BLOOD PRESSURE
     Dosage: 1.25 MG, Q6H, PRN
     Route: 042
     Dates: start: 20120114
  9. PROTONIX [Concomitant]
     Dosage: 40 MG, Q12H
     Route: 042
     Dates: start: 20120114
  10. PHENERGAN [Concomitant]
     Indication: VOMITING
  11. OXYCODONE HYDROCHLORIDE [Suspect]
     Indication: PAIN
     Dosage: 15 MG, EVERY 6 HOURS AS NEEDED
     Route: 048
     Dates: start: 20120114, end: 20120128
  12. TYLENOL [Concomitant]
     Indication: PYREXIA
  13. CLONIDINE [Concomitant]
     Indication: BLOOD PRESSURE
     Dosage: 0.1 MG, Q6H PRN
     Route: 048
     Dates: start: 20120114
  14. CHANTIX [Suspect]
     Indication: SMOKING CESSATION THERAPY
     Dosage: 0.5 MG, 1X/DAY
     Route: 048
     Dates: start: 20111201
  15. ASPIRIN [Concomitant]
     Dosage: 81 MG, 1X/DAY
     Route: 048
     Dates: start: 20120114
  16. ZOFRAN [Concomitant]
     Indication: VOMITING
  17. PHENERGAN [Concomitant]
     Indication: NAUSEA
     Dosage: 6.25 MG, Q3H PRN
     Route: 042
     Dates: start: 20120114
  18. ATIVAN [Concomitant]
     Indication: AGITATION
     Dosage: 1 MG, Q2H, PRN
     Route: 042
     Dates: start: 20120114, end: 20120128
  19. MAALOX PLUS EXTRA STRENGTH [Concomitant]
     Indication: DYSPEPSIA
     Dosage: 30 ML, Q4H PRN
     Route: 048
     Dates: start: 20120114

REACTIONS (21)
  - BLOOD PRESSURE SYSTOLIC INCREASED [None]
  - HALLUCINATION [None]
  - CONFUSIONAL STATE [None]
  - BLOOD CHOLESTEROL INCREASED [None]
  - AFFECT LABILITY [None]
  - TOXICITY TO VARIOUS AGENTS [None]
  - ATAXIA [None]
  - DRUG ABUSE [None]
  - SOMNOLENCE [None]
  - ABNORMAL BEHAVIOUR [None]
  - EYE MOVEMENT DISORDER [None]
  - AGGRESSION [None]
  - NIGHTMARE [None]
  - GAIT DISTURBANCE [None]
  - BODY TEMPERATURE DECREASED [None]
  - MENTAL STATUS CHANGES [None]
  - DYSARTHRIA [None]
  - SUICIDAL IDEATION [None]
  - ISCHAEMIA [None]
  - INTENTIONAL OVERDOSE [None]
  - LETHARGY [None]
